FAERS Safety Report 7377783-4 (Version None)
Quarter: 2011Q1

REPORT INFORMATION
  Report Type: 
  Country: None (occurrence: None)
  Receive Date: 20110328
  Receipt Date: 20110322
  Transmission Date: 20110831
  Serious: Yes (Hospitalization, Other)
  Sender: FDA-Public Use
  Company Number: US-ROCHE-479478

PATIENT
  Sex: Female
  Weight: 61.2 kg

DRUGS (9)
  1. ACCUTANE [Suspect]
     Dosage: DOSAGE REGIMEN REPORTED AS QD.
     Route: 048
     Dates: start: 20001023, end: 20010420
  2. TRIPHASIL-21 [Concomitant]
  3. UNSPECIFIED DRUG [Concomitant]
     Dosage: REPORTED AS: NOVIA
  4. AMIBID LA [Concomitant]
     Route: 048
     Dates: start: 20001219
  5. ACCUTANE [Suspect]
     Indication: ACNE
     Route: 048
     Dates: start: 19950101
  6. PROVERA [Concomitant]
  7. MIRCETTE [Concomitant]
  8. ACCUTANE [Suspect]
     Route: 048
     Dates: start: 19960901
  9. ZITHROMAX [Concomitant]
     Route: 048
     Dates: start: 20001219

REACTIONS (11)
  - GENITAL HERPES [None]
  - INFLAMMATORY BOWEL DISEASE [None]
  - CROHN'S DISEASE [None]
  - GASTROINTESTINAL DISORDER [None]
  - FATIGUE [None]
  - PANIC ATTACK [None]
  - COLITIS ULCERATIVE [None]
  - PROCTOCOLITIS [None]
  - ANXIETY [None]
  - PROCTITIS ULCERATIVE [None]
  - COLITIS [None]
